FAERS Safety Report 4456890-X (Version None)
Quarter: 2004Q3

REPORT INFORMATION
  Report Type: 
  Country: None (occurrence: None)
  Receive Date: 20040921
  Receipt Date: 20040913
  Transmission Date: 20050211
  Serious: Yes (Death, Hospitalization, Other)
  Sender: FDA-Public Use
  Company Number: US-JNJFOC-20040903597

PATIENT
  Age: 21 Year
  Sex: Female

DRUGS (1)
  1. ACETAMINOPHEN [Suspect]
     Indication: SUICIDE ATTEMPT
     Dosage: ORAL
     Route: 048

REACTIONS (15)
  - ACIDOSIS [None]
  - ANURIA [None]
  - BLOOD CREATININE ABNORMAL [None]
  - BRADYCARDIA [None]
  - BRAIN OEDEMA [None]
  - CARDIAC ARREST [None]
  - HAEMODIALYSIS [None]
  - HEPATIC ENCEPHALOPATHY [None]
  - HYPOGLYCAEMIA [None]
  - HYPOTENSION [None]
  - INTENTIONAL OVERDOSE [None]
  - INTERNATIONAL NORMALISED RATIO INCREASED [None]
  - LETHARGY [None]
  - SEPSIS [None]
  - SUICIDE ATTEMPT [None]
